FAERS Safety Report 6762350-3 (Version None)
Quarter: 2010Q2

REPORT INFORMATION
  Report Type: 
  Country: None (occurrence: None)
  Receive Date: 20100609
  Receipt Date: 20100602
  Transmission Date: 20101027
  Serious: Yes (Hospitalization, Other)
  Sender: FDA-Public Use
  Company Number: JP-ROCHE-599811

PATIENT
  Sex: Female
  Weight: 65 kg

DRUGS (19)
  1. TOCILIZUMAB [Suspect]
     Indication: RHEUMATOID ARTHRITIS
     Route: 041
     Dates: start: 20080630, end: 20080630
  2. TOCILIZUMAB [Suspect]
     Route: 041
     Dates: start: 20080728, end: 20080728
  3. TOCILIZUMAB [Suspect]
     Route: 041
     Dates: start: 20080825, end: 20080825
  4. TOCILIZUMAB [Suspect]
     Route: 041
     Dates: start: 20080922, end: 20080922
  5. TOCILIZUMAB [Suspect]
     Route: 041
     Dates: start: 20081020, end: 20081020
  6. TOCILIZUMAB [Suspect]
     Route: 041
     Dates: start: 20081117, end: 20081117
  7. TOCILIZUMAB [Suspect]
     Route: 041
     Dates: start: 20081215, end: 20100402
  8. PREDONINE [Suspect]
     Indication: RHEUMATOID ARTHRITIS
     Route: 048
     Dates: end: 20081214
  9. PREDONINE [Suspect]
     Dosage: NOTE: IN MORNING: 5MG, IN EVENING: 2.5MG
     Route: 048
     Dates: start: 20081215
  10. TAKEPRON [Suspect]
     Indication: GASTRITIS PROPHYLAXIS
     Route: 048
  11. CALONAL [Suspect]
     Indication: DRUG USE FOR UNKNOWN INDICATION
     Dosage: FORM: PERORAL AGENT
     Route: 048
  12. ISCOTIN [Concomitant]
     Dosage: FORM: ORAL FORMULATION (NOT OTHERWISE SPECIFIED)
     Route: 048
     Dates: start: 20070122
  13. RHEUMATREX [Concomitant]
     Dosage: DIVIDED INTO THREE DOSES.
     Route: 048
     Dates: start: 20070416
  14. THEO-DUR [Concomitant]
     Dosage: FORM: PERORAL AGENT
     Route: 048
  15. HOKUNALIN [Concomitant]
     Dosage: FORM: TAPE.
     Route: 062
  16. VOLTAREN [Concomitant]
     Dosage: FORM: RECTAL SUPPOSITORY.
     Route: 054
  17. BENET [Concomitant]
     Route: 048
     Dates: end: 20080727
  18. BENET [Concomitant]
     Route: 048
     Dates: start: 20080728
  19. DEPAS [Concomitant]
     Dosage: FORM: PERORAL AGENT
     Route: 048
     Dates: end: 20080726

REACTIONS (4)
  - ANAEMIA [None]
  - BRONCHITIS [None]
  - LOWER GASTROINTESTINAL HAEMORRHAGE [None]
  - ORAL HERPES [None]
